FAERS Safety Report 7303815-5 (Version None)
Quarter: 2011Q1

REPORT INFORMATION
  Report Type: 
  Country: None (occurrence: None)
  Receive Date: 20110221
  Receipt Date: 20110214
  Transmission Date: 20110831
  Serious: Yes (Hospitalization, Congenital Anomaly)
  Sender: FDA-Public Use
  Company Number: A0687249A

PATIENT
  Sex: Male
  Weight: 1 kg

DRUGS (7)
  1. PRENATAL VITAMINS [Concomitant]
     Indication: PREGNANCY
     Route: 064
  2. DEXAMETHASONE [Concomitant]
     Route: 064
     Dates: start: 20040528
  3. AMBIEN [Concomitant]
     Route: 064
  4. PAXIL CR [Suspect]
     Indication: DEPRESSION
     Route: 064
     Dates: start: 20030101, end: 20050101
  5. AMPICILLIN [Concomitant]
     Route: 064
     Dates: start: 20040528
  6. PAXIL [Suspect]
     Indication: DEPRESSION
     Route: 064
     Dates: start: 20030101, end: 20050101
  7. MACROBID [Concomitant]
     Route: 064
     Dates: start: 20040501

REACTIONS (7)
  - HERMAPHRODITISM [None]
  - CONGENITAL GENITOURINARY ABNORMALITY [None]
  - DEVELOPMENTAL DELAY [None]
  - DRUG EXPOSURE DURING PREGNANCY [None]
  - GENITALIA EXTERNAL AMBIGUOUS [None]
  - DYSPNOEA [None]
  - HYPOSPADIAS [None]
